FAERS Safety Report 7009332-4 (Version None)
Quarter: 2010Q3

REPORT INFORMATION
  Report Type: 
  Country: None (occurrence: None)
  Receive Date: 20100921
  Receipt Date: 20100831
  Transmission Date: 20110219
  Serious: Yes (Other)
  Sender: FDA-Public Use
  Company Number: 2010US003512

PATIENT
  Age: 75 Year
  Sex: Male

DRUGS (1)
  1. LEXISCAN [Suspect]
     Indication: SCAN MYOCARDIAL PERFUSION
     Dosage: 1 DF, TOTAL DOSE, IV NOS

REACTIONS (3)
  - ELECTROCARDIOGRAM P WAVE ABNORMAL [None]
  - HEART RATE DECREASED [None]
  - UNRESPONSIVE TO STIMULI [None]
